FAERS Safety Report 20341066 (Version 2)
Quarter: 2022Q1

REPORT INFORMATION
  Report Type: Spontaneous
  Country: US (occurrence: None)
  Receive Date: 20220117
  Receipt Date: 20220225
  Transmission Date: 20220423
  Serious: Yes (Death)
  Sender: FDA-Public Use
  Company Number: 2022A021746

PATIENT
  Age: 27156 Day
  Sex: Female
  Weight: 60.8 kg

DRUGS (8)
  1. FASENRA [Suspect]
     Active Substance: BENRALIZUMAB
     Indication: Asthma
     Route: 058
     Dates: start: 202107
  2. ELIQUIS [Concomitant]
     Active Substance: APIXABAN
  3. EPIPEN [Concomitant]
     Active Substance: EPINEPHRINE
  4. LOSARTAN [Concomitant]
     Active Substance: LOSARTAN
  5. PRAVASTATIN [Concomitant]
     Active Substance: PRAVASTATIN
  6. PERCOCET [Concomitant]
     Active Substance: ACETAMINOPHEN\OXYCODONE HYDROCHLORIDE
  7. LEVOTHYROXINE [Concomitant]
     Active Substance: LEVOTHYROXINE
  8. LEVEMIR [Concomitant]
     Active Substance: INSULIN DETEMIR

REACTIONS (1)
  - Death [Fatal]

NARRATIVE: CASE EVENT DATE: 20211028
